FAERS Safety Report 5000340-1 (Version None)
Quarter: 2006Q2

REPORT INFORMATION
  Report Type: 
  Country: None (occurrence: None)
  Receive Date: 20060511
  Receipt Date: 20050715
  Transmission Date: 20061013
  Serious: Yes (Hospitalization, Disabling, Other)
  Sender: FDA-Public Use
  Company Number: US-MERCK-0507USA02119

PATIENT
  Age: 56 Year
  Sex: Male
  Weight: 115 kg

DRUGS (9)
  1. VIOXX [Suspect]
     Indication: ARTHRITIS
     Route: 048
     Dates: start: 20000101, end: 20040920
  2. VIOXX [Suspect]
     Route: 048
     Dates: start: 20000101, end: 20040920
  3. CARDURA [Concomitant]
     Indication: HYPERTENSION
     Route: 065
     Dates: start: 19960101
  4. COZAAR [Concomitant]
     Indication: HYPERTENSION
     Route: 048
     Dates: start: 19950101
  5. XANAX [Concomitant]
     Indication: ANXIETY
     Route: 065
     Dates: start: 20020101
  6. ZANTAC [Concomitant]
     Route: 065
  7. LIPITOR [Concomitant]
     Indication: BLOOD CHOLESTEROL INCREASED
     Route: 065
  8. ASPIRIN [Concomitant]
     Indication: PROPHYLAXIS
     Route: 065
     Dates: start: 19980101
  9. NAPROXEN [Suspect]
     Indication: ARTHRITIS
     Route: 065
     Dates: start: 19980101, end: 20010301

REACTIONS (7)
  - ABDOMINAL PAIN UPPER [None]
  - ANTINUCLEAR ANTIBODY POSITIVE [None]
  - ANXIETY [None]
  - CEREBROVASCULAR ACCIDENT [None]
  - GENERALISED ANXIETY DISORDER [None]
  - MITRAL VALVE INCOMPETENCE [None]
  - MYOCARDIAL ISCHAEMIA [None]
